FAERS Safety Report 16164671 (Version 1)
Quarter: 2019Q2

REPORT INFORMATION
  Report Type: Spontaneous
  Country: CA (occurrence: CA)
  Receive Date: 20190405
  Receipt Date: 20190405
  Transmission Date: 20190711
  Serious: Yes (Life-Threatening, Hospitalization)
  Sender: FDA-Public Use
  Company Number: CA-HLSUS-2019-CA-000381

PATIENT
  Age: 68 Year
  Sex: Female

DRUGS (12)
  1. WARFARIN [Concomitant]
     Active Substance: WARFARIN
  2. CALCIUM [Concomitant]
     Active Substance: CALCIUM
  3. ATROVENT HFA [Concomitant]
     Active Substance: IPRATROPIUM BROMIDE
  4. LAX-A-DAY [Concomitant]
  5. CLOZARIL [Suspect]
     Active Substance: CLOZAPINE
     Indication: SCHIZOAFFECTIVE DISORDER
     Dosage: 300MG 1 EVERY 1 DAY
     Route: 048
  6. SYNTHROID - TAB 88MCG [Concomitant]
  7. VITAMIN D NOS [Concomitant]
     Active Substance: VITAMIN D NOS
  8. ANASTROZOLE. [Concomitant]
     Active Substance: ANASTROZOLE
  9. DOCUSATE SODIUM. [Concomitant]
     Active Substance: DOCUSATE SODIUM
  10. DEXILANT [Concomitant]
     Active Substance: DEXLANSOPRAZOLE
  11. LITHIUM. [Concomitant]
     Active Substance: LITHIUM
  12. SENNOSIDES. [Concomitant]
     Active Substance: SENNOSIDES

REACTIONS (3)
  - Colitis ischaemic [Recovering/Resolving]
  - Endotracheal intubation [Recovering/Resolving]
  - Septic shock [Recovering/Resolving]
